FAERS Safety Report 17365410 (Version 7)
Quarter: 2020Q3

REPORT INFORMATION
  Report Type: Spontaneous
  Country: PL (occurrence: PL)
  Receive Date: 20200204
  Receipt Date: 20200706
  Transmission Date: 20201102
  Serious: Yes (Hospitalization)
  Sender: FDA-Public Use
  Company Number: PL-SUN PHARMACEUTICAL INDUSTRIES LTD-2020R1-235066

PATIENT
  Age: 63 Year
  Sex: Male

DRUGS (7)
  1. OXYCODONE [Suspect]
     Active Substance: OXYCODONE
     Indication: TUMOUR PAIN
     Dosage: 120 MG, DAILY (TWO DIVIDED DOSES)
     Route: 065
  2. OXYCODONE [Suspect]
     Active Substance: OXYCODONE
     Indication: PAIN
     Dosage: 40 MILLIGRAM, BID
     Route: 065
  3. PREGABALIN. [Suspect]
     Active Substance: PREGABALIN
     Indication: TUMOUR PAIN
  4. MORPHINE [Suspect]
     Active Substance: MORPHINE
     Indication: BREAKTHROUGH PAIN
     Dosage: 10 MILLIGRAMS (FAST?ACTING TABLETS)
     Route: 058
  5. OXYCODONE [Suspect]
     Active Substance: OXYCODONE
     Dosage: 80 MILLIGRAM, DAILY(TWO DIVIDED DOSES)
     Route: 065
  6. MORPHINE [Interacting]
     Active Substance: MORPHINE
     Indication: BREAKTHROUGH PAIN
     Dosage: 10 MILLIGRAM, UNK
     Route: 058
  7. PREGABALIN. [Suspect]
     Active Substance: PREGABALIN
     Indication: BREAKTHROUGH PAIN
     Dosage: 75 MILLIGRAM, BID
     Route: 065

REACTIONS (10)
  - Drug ineffective [Unknown]
  - Overdose [Unknown]
  - Tremor [Recovered/Resolved]
  - Drug intolerance [Unknown]
  - Nausea [Recovered/Resolved]
  - Therapy partial responder [Unknown]
  - Drug interaction [Unknown]
  - Somnolence [Recovered/Resolved]
  - Dry mouth [Recovering/Resolving]
  - Dysarthria [Unknown]
